FAERS Safety Report 16803247 (Version 2)
Quarter: 2019Q3

REPORT INFORMATION
  Report Type: Spontaneous
  Country: GB (occurrence: GB)
  Receive Date: 20190913
  Receipt Date: 20190916
  Transmission Date: 20191005
  Serious: Yes (Other)
  Sender: FDA-Public Use
  Company Number: GB-BAYER-2019-166271

PATIENT
  Age: 36 Year
  Sex: Female

DRUGS (3)
  1. ESSURE [Suspect]
     Active Substance: DEVICE
     Indication: STERILISATION
     Dosage: UNK
     Dates: start: 20090609
  2. MIRENA [Suspect]
     Active Substance: LEVONORGESTREL
  3. MIRENA [Suspect]
     Active Substance: LEVONORGESTREL
     Dosage: 20 MCG/24HR, CONT
     Route: 015
     Dates: start: 201707

REACTIONS (22)
  - Procedural pain [Unknown]
  - Breast discharge [Unknown]
  - Menorrhagia [Unknown]
  - Axillary mass [Unknown]
  - Depression [Unknown]
  - Suicidal ideation [Unknown]
  - Gastric disorder [Unknown]
  - Mood swings [Unknown]
  - Hot flush [Unknown]
  - Menopause [Unknown]
  - Post procedural discomfort [Unknown]
  - Feeling abnormal [Unknown]
  - Polymenorrhoea [Unknown]
  - Dyspepsia [Unknown]
  - Dysmenorrhoea [Unknown]
  - Breast swelling [Unknown]
  - Dizziness [Unknown]
  - Iron deficiency [Unknown]
  - Urinary tract infection [Unknown]
  - Kidney infection [Unknown]
  - Night sweats [Unknown]
  - Palpitations [Unknown]

NARRATIVE: CASE EVENT DATE: 201707
